FAERS Safety Report 7342204-4 (Version None)
Quarter: 2011Q1

REPORT INFORMATION
  Report Type: 
  Country: None (occurrence: None)
  Receive Date: 20110310
  Receipt Date: 20110301
  Transmission Date: 20110831
  Serious: Yes (Other)
  Sender: FDA-Public Use
  Company Number: NL-AMGEN-NLDSP2011012309

PATIENT
  Age: 40 Year
  Sex: Female

DRUGS (8)
  1. ENBREL [Suspect]
     Indication: PSORIATIC ARTHROPATHY
     Dosage: 50 MG, WEEKLY
     Dates: start: 20110117
  2. TRAMAL                             /00599202/ [Concomitant]
     Dosage: UNK
  3. PANADEINE CO [Concomitant]
     Dosage: UNK
  4. DICLOFENAC [Concomitant]
     Dosage: UNK
  5. TEMAZEPAM [Concomitant]
     Dosage: UNK
  6. MIRTAZAPINE [Concomitant]
     Dosage: UNK
  7. SULFASALAZINE [Concomitant]
     Dosage: UNK
  8. OMEPRAZOL                          /00661201/ [Concomitant]
     Dosage: UNK

REACTIONS (4)
  - FRACTURE [None]
  - GAIT DISTURBANCE [None]
  - INFLAMMATION [None]
  - INJECTION SITE HAEMATOMA [None]
